FAERS Safety Report 8560846 (Version 6)
Quarter: 2012Q4

REPORT INFORMATION
  Report Type: 
  Country: US (occurrence: US)
  Receive Date: 20120514
  Receipt Date: 20121017
  Transmission Date: 20130627
  Serious: Yes (Death, Hospitalization, Disabling)
  Sender: FDA-Public Use
  Company Number: US-CELGENEUS-163-21880-12050923

PATIENT
  Age: 64 None
  Sex: Male

DRUGS (36)
  1. REVLIMID [Suspect]
     Indication: LYMPHOMA (NON-HODGKIN^S)
     Dosage: 15 Milligram
     Route: 048
     Dates: start: 201111, end: 2012
  2. PLATELETS [Concomitant]
     Indication: TRANSFUSION
     Dosage: 6 units
     Route: 041
     Dates: start: 20120502
  3. OXYGEN [Concomitant]
     Indication: DRUG USE FOR UNKNOWN INDICATION
     Route: 045
  4. AMIODARONE [Concomitant]
     Indication: ATRIAL FIBRILLATION
     Dosage: 400 Milligram
     Route: 041
     Dates: end: 20120508
  5. AMIODARONE [Concomitant]
     Dosage: 200 Milligram
     Route: 065
  6. MOXIFLOXACIN [Concomitant]
     Indication: DRUG USE FOR UNKNOWN INDICATION
     Dosage: 400 Milligram
     Route: 048
     Dates: end: 201205
  7. CARAFATE [Concomitant]
     Indication: DRUG USE FOR UNKNOWN INDICATION
     Dosage: 4 Gram
     Route: 048
  8. DEXAMETHASONE [Concomitant]
     Indication: SPINAL CORD COMPRESSION
     Dosage: 8 Milligram
     Route: 048
  9. DEXAMETHASONE [Concomitant]
     Route: 041
  10. DEXAMETHASONE [Concomitant]
     Dosage: 4 Milligram
     Route: 065
  11. HALDOL [Concomitant]
     Indication: DRUG USE FOR UNKNOWN INDICATION
     Dosage: 2 Milligram
     Route: 048
  12. IPRATROPIUM [Concomitant]
     Indication: DRUG USE FOR UNKNOWN INDICATION
     Route: 055
  13. METOPROLOL [Concomitant]
     Indication: DRUG USE FOR UNKNOWN INDICATION
     Dosage: 75 Milligram
     Route: 048
  14. MIRALAX [Concomitant]
     Indication: DRUG USE FOR UNKNOWN INDICATION
     Dosage: 34 Gram
     Route: 048
  15. MORPHINE EXTENDED RELEASE [Concomitant]
     Indication: BREAKTHROUGH PAIN
     Dosage: 60 Milligram
     Route: 048
     Dates: start: 20120426
  16. MORPHINE EXTENDED RELEASE [Concomitant]
     Dosage: 7.5-15mg
     Route: 048
  17. MORPHINE EXTENDED RELEASE [Concomitant]
     Dosage: basal
     Route: 065
  18. MORPHINE EXTENDED RELEASE [Concomitant]
     Dosage: 2 Milligram
     Route: 065
  19. MORPHINE EXTENDED RELEASE [Concomitant]
     Dosage: 30 Milligram
     Route: 048
     Dates: start: 20120501
  20. MORPHINE EXTENDED RELEASE [Concomitant]
     Dosage: 15 Milligram
     Route: 048
  21. PEPCID [Concomitant]
     Indication: DRUG USE FOR UNKNOWN INDICATION
     Dosage: 20 Milligram
     Route: 048
  22. PROTONIX [Concomitant]
     Indication: DRUG USE FOR UNKNOWN INDICATION
     Dosage: 40 Milligram
     Route: 048
  23. REGLAN [Concomitant]
     Indication: NAUSEA
     Dosage: 60 Milligram
     Route: 048
  24. SENOKOT [Concomitant]
     Indication: DRUG USE FOR UNKNOWN INDICATION
     Dosage: 6 Tablet
     Route: 048
  25. TESSALON PERLES [Concomitant]
     Indication: DRUG USE FOR UNKNOWN INDICATION
     Dosage: 600 Milligram
     Route: 048
  26. XYLOXYLIN [Concomitant]
     Indication: HEARTBURN
     Dosage: 300 Milligram
     Route: 065
  27. ALBUTEROL [Concomitant]
     Indication: DRUG USE FOR UNKNOWN INDICATION
     Route: 055
  28. FLUIDS [Concomitant]
     Indication: DRUG USE FOR UNKNOWN INDICATION
     Route: 041
  29. VASOPRESSORS [Concomitant]
     Indication: DRUG USE FOR UNKNOWN INDICATION
     Route: 065
  30. MERREM [Concomitant]
     Indication: DRUG USE FOR UNKNOWN INDICATION
     Route: 041
     Dates: start: 201204
  31. VANCOMYCIN [Concomitant]
     Indication: DRUG USE FOR UNKNOWN INDICATION
     Route: 041
     Dates: start: 201204
  32. TOBRAMYCIN [Concomitant]
     Indication: DRUG USE FOR UNKNOWN INDICATION
     Route: 041
     Dates: start: 201204
  33. LISINOPRIL [Concomitant]
     Indication: DRUG USE FOR UNKNOWN INDICATION
     Route: 065
  34. SOTALOL [Concomitant]
     Indication: DRUG USE FOR UNKNOWN INDICATION
     Route: 065
  35. FAMOTIDINE [Concomitant]
     Indication: CHEST PAIN
  36. RITUXAN [Concomitant]
     Indication: DRUG USE FOR UNKNOWN INDICATION
     Route: 065

REACTIONS (5)
  - Mantle cell lymphoma [Fatal]
  - Pneumonia [Recovered/Resolved]
  - Atrial fibrillation [Recovered/Resolved]
  - Sepsis [Recovered/Resolved]
  - Drug ineffective [Unknown]
